FAERS Safety Report 4498490-1 (Version None)
Quarter: 2004Q4

REPORT INFORMATION
  Report Type: 
  Country: None (occurrence: None)
  Receive Date: 20041105
  Receipt Date: 20041022
  Transmission Date: 20050328
  Serious: Yes (Hospitalization, Other)
  Sender: FDA-Public Use
  Company Number: 2004S1003161

PATIENT
  Age: 82 Year
  Sex: Female

DRUGS (9)
  1. APOKYN [Suspect]
     Indication: PARKINSON'S DISEASE
     Dosage: 1 MG (CHALLENGE DOSE), SUBCUTANEOUS
     Route: 058
     Dates: start: 20040725
  2. CARBIDOPA AND LEVODOPA [Concomitant]
  3. CARBIDOPA/BENSERAZIDE [Concomitant]
  4. QUETIAPINE FUMARATE [Concomitant]
  5. ZOLPIDEM [Concomitant]
  6. AMXICILLIN/CLAVULANATE ACID [Concomitant]
  7. CIPROFLOXACIN [Concomitant]
  8. RANATIDINE [Concomitant]
  9. CARBIDOPA/LEVODOPA CR [Concomitant]

REACTIONS (4)
  - BLOOD PRESSURE DECREASED [None]
  - CYANOSIS [None]
  - LIVEDO RETICULARIS [None]
  - OXYGEN SATURATION DECREASED [None]
